FAERS Safety Report 7829377-1 (Version None)
Quarter: 2011Q4

REPORT INFORMATION
  Report Type: 
  Country: None (occurrence: None)
  Receive Date: 20111020
  Receipt Date: 20111011
  Transmission Date: 20120403
  Serious: Yes (Other)
  Sender: FDA-Public Use
  Company Number: NG-ASTRAZENECA-2011SE61936

PATIENT
  Sex: Male

DRUGS (2)
  1. HAEMACTIN [Concomitant]
     Indication: SUPPLEMENTATION THERAPY
     Route: 048
     Dates: start: 20110901
  2. PLENDIL [Suspect]
     Indication: HYPERTENSION
     Route: 048
     Dates: start: 20110901, end: 20110901

REACTIONS (2)
  - HEADACHE [None]
  - RESTLESSNESS [None]
